FAERS Safety Report 4378658-5 (Version None)
Quarter: 2004Q2

REPORT INFORMATION
  Report Type: 
  Country: None (occurrence: None)
  Receive Date: 20040609
  Receipt Date: 20040524
  Transmission Date: 20050107
  Serious: Yes (Hospitalization)
  Sender: FDA-Public Use
  Company Number: A02200401693

PATIENT
  Age: 69 Year
  Sex: Male

DRUGS (6)
  1. XATRAL - (ALFUZOSIN) - TABLET - 2.5 MG [Suspect]
     Dosage: 2.5 MG OD
     Route: 048
     Dates: start: 19990615, end: 20040325
  2. ALLOPURINOL [Suspect]
     Dosage: 300 MG OD
     Route: 048
     Dates: start: 19990615, end: 20040325
  3. TAHOR - (ATORVASTATIN CALCIUM) - TABLET - UNIT DOSE: UNKNOWN [Suspect]
     Route: 048
     Dates: start: 19990615, end: 20040325
  4. HYTACAND  - (CANDESARTAN CILEXITIL/HYDROCHLOROTHIAZIDE) - TABELT - UNI [Suspect]
     Route: 048
     Dates: end: 20040325
  5. ORELOX - (CEFPODOXIME PROXETIL) - TABLET - 100 MG [Suspect]
     Dosage: 200 MG QD
     Route: 048
     Dates: start: 20040215, end: 20040301
  6. PERMIXON - (SERENOA REPENS) - CAPSULE - 160 MG [Suspect]
     Indication: BRONCHIAL INFECTION
     Dosage: 160 MG QD
     Route: 048
     Dates: end: 20040325

REACTIONS (2)
  - ECZEMA [None]
  - RASH MACULO-PAPULAR [None]
